FAERS Safety Report 4391263-X (Version None)
Quarter: 2004Q2

REPORT INFORMATION
  Report Type: 
  Country: None (occurrence: None)
  Receive Date: 20040621
  Receipt Date: 20031114
  Transmission Date: 20050107
  Serious: Yes (Other)
  Sender: FDA-Public Use
  Company Number: USA-2002-0001020

PATIENT
  Age: 38 Year
  Sex: Female
  Weight: 84.8 kg

DRUGS (6)
  1. OXYCONTIN [Suspect]
     Dosage: UNK MG
  2. ELAVIL [Concomitant]
  3. PROVENTIL [Concomitant]
  4. AMBIEN [Concomitant]
  5. PROZAC [Concomitant]
  6. ALLEGRA-D [Concomitant]

REACTIONS (19)
  - ANXIETY [None]
  - ASTHENIA [None]
  - CHEST PAIN [None]
  - COUGH [None]
  - DEPRESSION [None]
  - DIARRHOEA [None]
  - DIZZINESS [None]
  - DRUG DEPENDENCE [None]
  - DRUG WITHDRAWAL SYNDROME [None]
  - DYSPNOEA [None]
  - EXCORIATION [None]
  - JOINT SWELLING [None]
  - NASOPHARYNGITIS [None]
  - PAIN [None]
  - PHARYNGITIS [None]
  - PHYSICAL ASSAULT [None]
  - RHINITIS ALLERGIC [None]
  - RHINORRHOEA [None]
  - SKIN LACERATION [None]
